FAERS Safety Report 15309618 (Version 1)
Quarter: 2018Q3

REPORT INFORMATION
  Report Type: Spontaneous
  Country: US (occurrence: US)
  Receive Date: 20180812
  Receipt Date: 20180812
  Transmission Date: 20181010
  Serious: Yes (Hospitalization)
  Sender: FDA-Public Use
  Company Number: None

PATIENT
  Age: 65 Year
  Sex: Female

DRUGS (4)
  1. DEXAMETHASONE. [Concomitant]
     Active Substance: DEXAMETHASONE
  2. CARBOPLATIN. [Concomitant]
     Active Substance: CARBOPLATIN
  3. ONDANSETRON [Concomitant]
     Active Substance: ONDANSETRON
  4. ETOPOSIDE INJ 20MG/ML [Suspect]
     Active Substance: ETOPOSIDE
     Dosage: INTRAVENOUS (NOT OTHERWISE SPECIFIED)
     Route: 042

REACTIONS (4)
  - Nausea [None]
  - Therapy cessation [None]
  - Drug intolerance [None]
  - Vomiting [None]

NARRATIVE: CASE EVENT DATE: 20180501
